FAERS Safety Report 12989856 (Version 2)
Quarter: 2016Q4

REPORT INFORMATION
  Report Type: Spontaneous
  Country: IT (occurrence: IT)
  Receive Date: 20161201
  Receipt Date: 20161212
  Transmission Date: 20170207
  Serious: Yes (Other)
  Sender: FDA-Public Use
  Company Number: IT-TEVA-715380ACC

PATIENT
  Age: 60 Year
  Sex: Male

DRUGS (3)
  1. OLANZAPINA TEVA [Suspect]
     Active Substance: OLANZAPINE
     Indication: BIPOLAR DISORDER
     Dosage: 20 MILLIGRAM DAILY;
     Route: 048
  2. FLUNOX [Concomitant]
     Active Substance: FLURAZEPAM HYDROCHLORIDE
     Indication: INSOMNIA
  3. DEPAKIN CHRONO [Concomitant]
     Active Substance: VALPROIC ACID
     Indication: AFFECTIVE DISORDER

REACTIONS (7)
  - Pain in extremity [Not Recovered/Not Resolved]
  - Dyspnoea [Not Recovered/Not Resolved]
  - Chest pain [Not Recovered/Not Resolved]
  - Malaise [Not Recovered/Not Resolved]
  - Balance disorder [Not Recovered/Not Resolved]
  - Gait disturbance [Not Recovered/Not Resolved]
  - Vertigo [Not Recovered/Not Resolved]
